FAERS Safety Report 8454729-9 (Version None)
Quarter: 2012Q2

REPORT INFORMATION
  Report Type: 
  Country: None (occurrence: None)
  Receive Date: 20120621
  Receipt Date: 20120611
  Transmission Date: 20120825
  Serious: Yes (Other)
  Sender: FDA-Public Use
  Company Number: US-JNJFOC-20120606499

PATIENT
  Sex: Female

DRUGS (52)
  1. DURAGESIC-100 [Suspect]
     Dosage: 75 UG/HR OR 100 UG/HR
     Route: 062
  2. DURAGESIC-100 [Suspect]
     Dosage: 75 UG/HR OR 100 UG/HR
     Route: 062
  3. DURAGESIC-100 [Suspect]
     Dosage: 75 UG/HR OR 100 UG/HR
     Route: 062
  4. DURAGESIC-100 [Suspect]
     Route: 062
  5. DURAGESIC-100 [Suspect]
     Dosage: 75 UG/HR OR 100 UG/HR
     Route: 062
  6. DURAGESIC-100 [Suspect]
     Dosage: 75 UG/HR OR 100 UG/HR
     Route: 062
  7. FENTANYL-100 [Suspect]
     Route: 062
     Dates: start: 20080101
  8. DURAGESIC-100 [Suspect]
     Dosage: 100 UG/HR + 25 UG/HR
     Route: 062
     Dates: start: 20090101
  9. DURAGESIC-100 [Suspect]
     Dosage: 75 UG/HR OR 100 UG/HR
     Route: 062
  10. DURAGESIC-100 [Suspect]
     Indication: MIGRAINE
     Route: 062
     Dates: start: 20080101
  11. DURAGESIC-100 [Suspect]
     Route: 062
     Dates: start: 20080101
  12. FENTANYL-100 [Suspect]
     Route: 062
  13. FENTANYL-100 [Suspect]
     Route: 062
  14. DURAGESIC-100 [Suspect]
     Dosage: 100 UG/HR + 25 UG/HR
     Route: 062
     Dates: start: 20090101
  15. DURAGESIC-100 [Suspect]
     Route: 062
  16. DURAGESIC-100 [Suspect]
     Route: 062
  17. FENTANYL-100 [Suspect]
     Dosage: 100 UG/HR + 25 UG/HR
     Route: 062
     Dates: start: 20080101
  18. DURAGESIC-100 [Suspect]
     Dosage: 75 UG/HR OR 100 UG/HR
     Route: 062
  19. DURAGESIC-100 [Suspect]
     Route: 062
  20. DURAGESIC-100 [Suspect]
     Indication: SPINAL DISORDER
     Dosage: 75 UG/HR OR 100 UG/HR
     Route: 062
  21. FENTANYL-100 [Suspect]
     Dosage: 75 UG/HR OR 100 UG/HR
     Route: 062
  22. FENTANYL-100 [Suspect]
     Route: 062
  23. DURAGESIC-100 [Suspect]
     Route: 062
  24. DURAGESIC-100 [Suspect]
     Dosage: 100 UG/HR + 25 UG/HR
     Route: 062
     Dates: start: 20080101
  25. FENTANYL-100 [Suspect]
     Route: 062
  26. FENTANYL-100 [Suspect]
     Dosage: 75 UG/HR OR 100 UG/HR
     Route: 062
  27. DURAGESIC-100 [Suspect]
     Dosage: 100 UG/HR + 25 UG/HR
     Route: 062
     Dates: start: 20080101
  28. DURAGESIC-100 [Suspect]
     Dosage: 100 UG/HR + 25 UG/HR
     Route: 062
     Dates: start: 20080101
  29. DURAGESIC-100 [Suspect]
     Route: 062
  30. FENTANYL-100 [Suspect]
     Route: 062
     Dates: start: 20080101
  31. FENTANYL-100 [Suspect]
     Dosage: 100 UG/HR + 25 UG/HR
     Route: 062
     Dates: start: 20080101
  32. FENTANYL-100 [Suspect]
     Dosage: 75 UG/HR OR 100 UG/HR
     Route: 062
  33. FENTANYL-100 [Suspect]
     Indication: MIGRAINE
     Dosage: 75 UG/HR OR 100 UG/HR
     Route: 062
  34. FENTANYL-100 [Suspect]
     Route: 062
  35. FENTANYL-100 [Suspect]
     Dosage: 100 UG/HR + 25 UG/HR
     Route: 062
     Dates: start: 20080101
  36. FENTANYL-100 [Suspect]
     Route: 062
     Dates: start: 20080101
  37. FENTANYL-100 [Suspect]
     Indication: FIBROMYALGIA
     Dosage: 100 UG/HR + 25 UG/HR
     Route: 062
     Dates: start: 20080101
  38. FENTANYL-100 [Suspect]
     Route: 062
     Dates: start: 20080101
  39. FENTANYL-100 [Suspect]
     Dosage: 75 UG/HR OR 100 UG/HR
     Route: 062
  40. DURAGESIC-100 [Suspect]
     Route: 062
  41. DURAGESIC-100 [Suspect]
     Indication: FIBROMYALGIA
     Dosage: 100 UG/HR + 25 UG/HR
     Route: 062
     Dates: start: 20080101
  42. DURAGESIC-100 [Suspect]
     Route: 062
     Dates: start: 20080101
  43. FENTANYL-100 [Suspect]
     Indication: RAYNAUD'S PHENOMENON
     Route: 062
  44. FENTANYL-100 [Suspect]
     Dosage: 75 UG/HR OR 100 UG/HR
     Route: 062
  45. FENTANYL-100 [Suspect]
     Indication: SPINAL DISORDER
     Dosage: 75 UG/HR OR 100 UG/HR
     Route: 062
  46. FENTANYL-100 [Suspect]
     Route: 062
  47. DURAGESIC-100 [Suspect]
     Indication: RAYNAUD'S PHENOMENON
     Route: 062
     Dates: start: 20080101
  48. DURAGESIC-100 [Suspect]
     Route: 062
  49. FENTANYL-100 [Suspect]
     Route: 062
  50. FENTANYL-100 [Suspect]
     Dosage: 75 UG/HR OR 100 UG/HR
     Route: 062
  51. DURAGESIC-100 [Suspect]
     Dosage: 100 UG/HR + 25 UG/HR
     Route: 062
     Dates: start: 20090101
  52. DURAGESIC-100 [Suspect]
     Dosage: 100 UG/HR + 25 UG/HR
     Route: 062
     Dates: start: 20090101

REACTIONS (12)
  - EATING DISORDER [None]
  - POOR QUALITY DRUG ADMINISTERED [None]
  - WITHDRAWAL SYNDROME [None]
  - MALAISE [None]
  - FEELING ABNORMAL [None]
  - ABNORMAL LOSS OF WEIGHT [None]
  - DRUG EFFECT PROLONGED [None]
  - PAIN [None]
  - PRODUCT QUALITY ISSUE [None]
  - DRUG INEFFECTIVE [None]
  - INCORRECT STORAGE OF DRUG [None]
  - DRUG ADMINISTERED AT INAPPROPRIATE SITE [None]
